FAERS Safety Report 8927885 (Version 2)
Quarter: 2012Q4

REPORT INFORMATION
  Report Type: 
  Country: DE (occurrence: DE)
  Receive Date: 20121127
  Receipt Date: 20121217
  Transmission Date: 20130627
  Serious: Yes (Hospitalization, Other)
  Sender: FDA-Public Use
  Company Number: DE-ELI_LILLY_AND_COMPANY-DE201210005399

PATIENT
  Sex: Male
  Weight: 90 kg

DRUGS (3)
  1. ZYPADHERA [Suspect]
     Indication: SCHIZOPHRENIA
     Dosage: 405 mg, UNK
     Route: 030
     Dates: start: 201102, end: 20121012
  2. CITALOPRAM [Concomitant]
     Indication: DEPRESSION
     Dosage: 20 mg, qd
     Route: 048
  3. DOCITON [Concomitant]
     Indication: AKATHISIA
     Dosage: 20 mg, qd
     Route: 048

REACTIONS (12)
  - Restlessness [Recovered/Resolved]
  - Palpitations [Recovered/Resolved]
  - Dizziness [Recovered/Resolved]
  - Gait disturbance [Recovered/Resolved]
  - Tremor [Recovered/Resolved]
  - Confusional state [Recovered/Resolved]
  - Hypertension [Recovered/Resolved]
  - Malaise [Unknown]
  - Aggression [Unknown]
  - Nausea [Unknown]
  - Heart rate increased [Unknown]
  - Dyspnoea [Unknown]
